FAERS Safety Report 8774633 (Version 9)
Quarter: 2014Q3

REPORT INFORMATION
  Report Type: Spontaneous
  Country: US (occurrence: US)
  Receive Date: 20120907
  Receipt Date: 20140901
  Transmission Date: 20150326
  Serious: Yes (Hospitalization, Other)
  Sender: FDA-Public Use
  Company Number: US-AMGEN-USASP2012055454

PATIENT
  Age: 55 Year
  Sex: Female
  Weight: 76.64 kg

DRUGS (68)
  1. ENBREL [Suspect]
     Active Substance: ETANERCEPT
     Indication: RHEUMATOID ARTHRITIS
     Dosage: 25 MG, 2 TIMES/WK
     Route: 058
     Dates: start: 2002
  2. METAMUCIL [Concomitant]
     Active Substance: PLANTAGO SEED
     Dosage: 0.52 G, 3-4 CAPSULES PER DAY
  3. DARVOCET [Concomitant]
     Active Substance: ACETAMINOPHEN\PROPOXYPHENE HYDROCHLORIDE
     Dosage: 1 TABLET EVERY 8 HOURS AS NEEDED
  4. NEXIUM [Concomitant]
     Active Substance: ESOMEPRAZOLE MAGNESIUM
     Dosage: UNK
  5. IRON [Concomitant]
     Active Substance: IRON
     Dosage: 27 MG, QD
  6. FLEXERIL [Concomitant]
     Active Substance: CYCLOBENZAPRINE HYDROCHLORIDE
     Dosage: 10 MG, QD (EVERY BED TIME)
     Route: 048
  7. CLARITIN [Concomitant]
     Active Substance: LORATADINE
     Dosage: 10 MG, QD
  8. S-ADENOSYLMETHIONINE SULFATE P-TOLUENESULFONATE [Concomitant]
     Active Substance: ADEMETIONINE SULFATE TOSILATE
     Dosage: UNK UNK, QD
  9. PROPOXYPHENE AND ACETAMINOPHEN [Concomitant]
     Active Substance: ACETAMINOPHEN\PROPOXYPHENE NAPSYLATE
     Dosage: 100 - 500 MG
  10. PRILOSEC [Concomitant]
     Active Substance: OMEPRAZOLE MAGNESIUM
     Dosage: 1 DF, BID
  11. ARAVA [Concomitant]
     Active Substance: LEFLUNOMIDE
     Dosage: UNK
     Dates: start: 2001, end: 2003
  12. ACIDOPHILUS                        /00079701/ [Concomitant]
     Dosage: 1 TAB, DAILY
     Route: 048
  13. CELEBREX [Concomitant]
     Active Substance: CELECOXIB
     Indication: ARTHRALGIA
     Dosage: 200 MG, DAILY
     Route: 048
  14. TYLENOL [Concomitant]
     Active Substance: ACETAMINOPHEN
     Dosage: PRN
  15. ZYRTEC [Concomitant]
     Active Substance: CETIRIZINE HYDROCHLORIDE
     Dosage: UNK
  16. PLAQUENIL [Concomitant]
     Active Substance: HYDROXYCHLOROQUINE SULFATE
     Dosage: UNK UNK, BID
  17. LORTAB [Concomitant]
     Active Substance: ACETAMINOPHEN\HYDROCODONE BITARTRATE
     Dosage: 5 - 500 MG EVERY 4 - 6 HOURS, AS NECESSARY
  18. ALENDRONATE SODIUM. [Concomitant]
     Active Substance: ALENDRONATE SODIUM
     Dosage: 70 MG, UNK
  19. ZANTAC [Concomitant]
     Active Substance: RANITIDINE HYDROCHLORIDE
     Dosage: 300 MG, AT NIGHT
  20. COENZYM Q10 [Concomitant]
     Dosage: UNK
  21. TESSALON [Concomitant]
     Active Substance: BENZONATATE
     Dosage: 3X A DAY
  22. CYCLOBENZAPRINE HCL [Concomitant]
     Active Substance: CYCLOBENZAPRINE HYDROCHLORIDE
     Indication: MUSCLE SPASMS
     Dosage: 10 MG, (1 HS AS NECESSARY)
     Route: 048
     Dates: start: 20130629
  23. METHOTREXATE [Concomitant]
     Active Substance: METHOTREXATE
     Dosage: 7.5 MG, QWK
     Dates: start: 2003
  24. INDERAL [Concomitant]
     Active Substance: PROPRANOLOL HYDROCHLORIDE
     Dosage: UNK
  25. SOLU-MEDROL [Concomitant]
     Active Substance: METHYLPREDNISOLONE SODIUM SUCCINATE
     Dosage: 125 MG, UNK
     Route: 030
  26. DAPTOMYCIN [Concomitant]
     Active Substance: DAPTOMYCIN
     Dosage: 300 MG, UNK
     Route: 042
  27. HEPARIN [Concomitant]
     Active Substance: HEPARIN SODIUM
     Dosage: UNK
     Route: 058
  28. TOBRAMYCIN [Concomitant]
     Active Substance: TOBRAMYCIN
     Dosage: 0.3 %, UNK
  29. AMOXICILLIN. [Concomitant]
     Active Substance: AMOXICILLIN
     Dosage: 500 MG, UNK
  30. LICORICE                           /01125801/ [Concomitant]
     Dosage: 1 TAB 4X DAILY
     Route: 048
  31. BOSWELLIA [Concomitant]
     Dosage: 1 TAB, DAILY
     Route: 048
  32. VICODIN [Concomitant]
     Active Substance: ACETAMINOPHEN\HYDROCODONE BITARTRATE
     Dosage: 500 MG, AS NECESSARY
  33. VANCOMYCIN [Concomitant]
     Active Substance: VANCOMYCIN
     Dosage: UNK
  34. LUTEIN                             /01638501/ [Concomitant]
     Active Substance: LUTEIN
     Dosage: UNK
  35. OXYCODONE/APAP                     /01601701/ [Concomitant]
     Active Substance: ACETAMINOPHEN\OXYCODONE HYDROCHLORIDE
     Dosage: 5-325
  36. CELEBREX [Concomitant]
     Active Substance: CELECOXIB
     Dosage: TAKE ONE (1) CAPSULE DAILY
  37. CYCLOBENZAPRINE HCL [Concomitant]
     Active Substance: CYCLOBENZAPRINE HYDROCHLORIDE
     Indication: BACK PAIN
     Dosage: TAKE ONE (1) TABLET PRN
  38. MINOCYCLINE HCL [Concomitant]
     Active Substance: MINOCYCLINE HYDROCHLORIDE
     Dosage: ONE TABLET DAILY
  39. FLAXSEED [Concomitant]
     Active Substance: FLAX SEED
     Dosage: 1000 MG, EVERY DAY
     Route: 048
  40. TREXALL [Concomitant]
     Active Substance: METHOTREXATE SODIUM
     Dosage: 7.5 MG, QWK
     Route: 048
  41. ALENDRONATE SODIUM. [Concomitant]
     Active Substance: ALENDRONATE SODIUM
     Dosage: 5 MG, QWK
  42. DARVOCET-N 100 [Concomitant]
     Active Substance: ACETAMINOPHEN\PROPOXYPHENE NAPSYLATE
  43. OMEGA 3-6-9                        /01334101/ [Concomitant]
     Dosage: UNK
  44. PSEUDOEPHEDRINE HCL [Concomitant]
     Active Substance: PSEUDOEPHEDRINE HYDROCHLORIDE
     Dosage: PRN
  45. ZOLPIDEM TARTRATE. [Concomitant]
     Active Substance: ZOLPIDEM TARTRATE
     Dosage: 10 MG, UNK
  46. METHOTREXATE [Concomitant]
     Active Substance: METHOTREXATE
     Dosage: 2.5 MG, (6 PILLS FOR TOTAL 15 MG EVERY WEEK)
     Route: 048
  47. MINOCYCLINE HCL [Concomitant]
     Active Substance: MINOCYCLINE HYDROCHLORIDE
     Dosage: 100 MG, EVERY DAY
     Route: 048
     Dates: start: 20130629
  48. OMEPRAZOLE. [Concomitant]
     Active Substance: OMEPRAZOLE
     Dosage: 20 MG, EVERY DAY BEFORE A MEAL
     Route: 048
     Dates: start: 20130629
  49. PREDNISONE. [Concomitant]
     Active Substance: PREDNISONE
     Dosage: 5 MG, EVERY OTHER DAY
     Route: 048
     Dates: start: 20130629
  50. FOLIC ACID. [Concomitant]
     Active Substance: FOLIC ACID
     Dosage: 0.4 MG, 1 TABLET TWICE EVERY DAY
     Route: 048
  51. CO-ENZYME Q10 [Concomitant]
     Active Substance: UBIDECARENONE
     Dosage: 100 MG, QD
  52. TORADOL [Concomitant]
     Active Substance: KETOROLAC TROMETHAMINE
     Dosage: 30 MG, UNK
     Route: 030
  53. ALEVE [Concomitant]
     Active Substance: NAPROXEN SODIUM
     Dosage: UNK
  54. MOBIC [Concomitant]
     Active Substance: MELOXICAM
     Dosage: UNK
  55. CALCIFEROL                         /00107901/ [Concomitant]
     Dosage: 50000 IU, QWK
  56. METAMUCIL [Concomitant]
     Active Substance: PLANTAGO SEED
     Dosage: UNK
  57. PREDNISONE. [Concomitant]
     Active Substance: PREDNISONE
     Dosage: ONE TABLET BY ORAL ROUTE EVERY OTHER DAY
  58. SYNTHROID [Concomitant]
     Active Substance: LEVOTHYROXINE SODIUM
     Dosage: 25 MCG, EVERY DAY
     Route: 048
     Dates: start: 20130629
  59. FOSAMAX [Concomitant]
     Active Substance: ALENDRONATE SODIUM
     Dosage: 70 MG, UNK
     Route: 048
  60. SUDAFED [Concomitant]
     Active Substance: PSEUDOEPHEDRINE HYDROCHLORIDE
     Dosage: 30 MG, EVERY DAY AS NEEDED
     Route: 048
  61. COLYTE WITH FLAVOR PACKS [Concomitant]
     Active Substance: POLYETHYLENE GLYCOL 3350\POTASSIUM CHLORIDE\SODIUM BICARBONATE\SODIUM CHLORIDE\SODIUM SULFATE
     Dosage: 240 - 22.72 G, AS DIRECTED
  62. TREXALL [Concomitant]
     Active Substance: METHOTREXATE SODIUM
     Dosage: 10 MG, QWK
     Route: 048
  63. CINNAMON                           /01647501/ [Concomitant]
     Active Substance: CINNAMON
     Dosage: UNK
  64. LECITHIN [Concomitant]
     Active Substance: LECITHIN
     Dosage: 1 TAB, DAILY
     Route: 048
  65. HYDROXYCHLOROQUINE SULFATE. [Concomitant]
     Active Substance: HYDROXYCHLOROQUINE SULFATE
     Dosage: 200 MG, TWO TIMES EVERY DAY
     Route: 048
     Dates: start: 20130624
  66. FISH OIL [Concomitant]
     Active Substance: FISH OIL
     Dosage: UNK
  67. PHENAZOPYRIDINE. [Concomitant]
     Active Substance: PHENAZOPYRIDINE
     Dosage: 200 MG, UNK
  68. FLAGYL [Concomitant]
     Active Substance: METRONIDAZOLE\METRONIDAZOLE HYDROCHLORIDE
     Dosage: 3X A DAY

REACTIONS (34)
  - Hiatus hernia [Not Recovered/Not Resolved]
  - Pain [Unknown]
  - Spinal pain [Unknown]
  - Abdominal distension [Unknown]
  - Diverticulitis [Not Recovered/Not Resolved]
  - Suture related complication [Unknown]
  - Staphylococcal infection [Unknown]
  - Hypothyroidism [Unknown]
  - Localised intraabdominal fluid collection [Unknown]
  - Pulmonary granuloma [Unknown]
  - Colonic abscess [Unknown]
  - Fatigue [Unknown]
  - Seroma [Unknown]
  - Peritonitis [Unknown]
  - Abdominal wall abscess [Unknown]
  - Dizziness [Unknown]
  - Depression [Unknown]
  - Incisional hernia [Unknown]
  - Abdominal pain lower [Unknown]
  - Serositis [Unknown]
  - Intestinal perforation [Not Recovered/Not Resolved]
  - Ureteric perforation [Unknown]
  - Abdominal mass [Unknown]
  - Diverticulum [Unknown]
  - Platelet count increased [Unknown]
  - Muscular weakness [Unknown]
  - Diverticular perforation [Unknown]
  - Immunosuppression [Unknown]
  - Abscess [Not Recovered/Not Resolved]
  - Colitis ulcerative [Unknown]
  - Abdominal hernia [Unknown]
  - Hydronephrosis [Recovered/Resolved]
  - Chills [Unknown]
  - Nausea [Unknown]

NARRATIVE: CASE EVENT DATE: 200808
